FAERS Safety Report 12075602 (Version 6)
Quarter: 2019Q1

REPORT INFORMATION
  Report Type: Spontaneous
  Country: US (occurrence: US)
  Receive Date: 20160213
  Receipt Date: 20190108
  Transmission Date: 20190417
  Serious: Yes (Other)
  Sender: FDA-Public Use
  Company Number: US-009507513-1602USA004271

PATIENT
  Age: 27 Year
  Sex: Female
  Weight: 51.52 kg

DRUGS (1)
  1. NEXPLANON [Suspect]
     Active Substance: ETONOGESTREL
     Indication: CONTRACEPTION
     Dosage: 1 DOSAGE FORM
     Route: 059
     Dates: start: 20121129, end: 20160330

REACTIONS (10)
  - General anaesthesia [Recovered/Resolved]
  - Complication of device removal [Recovered/Resolved]
  - Complication of device removal [Recovered/Resolved]
  - Device breakage [Recovered/Resolved]
  - Incorrect product administration duration [Recovered/Resolved]
  - Complication associated with device [Recovered/Resolved]
  - Scar [Unknown]
  - Device dislocation [Recovered/Resolved]
  - No adverse event [Unknown]
  - General anaesthesia [Recovered/Resolved]

NARRATIVE: CASE EVENT DATE: 20151130
